FAERS Safety Report 16225305 (Version 1)
Quarter: 2019Q2

REPORT INFORMATION
  Report Type: Spontaneous
  Country: GB (occurrence: GB)
  Receive Date: 20190422
  Receipt Date: 20190422
  Transmission Date: 20190711
  Serious: Yes (Hospitalization)
  Sender: FDA-Public Use
  Company Number: GB-CANTON LABORATORIES, LLC-2066115

PATIENT
  Age: 65 Year
  Sex: Female

DRUGS (10)
  1. BISOPROLOL [Concomitant]
     Active Substance: BISOPROLOL
     Route: 065
  2. OMEPRAZOLE. [Concomitant]
     Active Substance: OMEPRAZOLE
     Route: 065
  3. NAPROSYN [Suspect]
     Active Substance: NAPROXEN
     Indication: SCIATICA
     Route: 048
     Dates: start: 20190308, end: 20190319
  4. PERIDOPRIL [Concomitant]
     Route: 065
  5. SIMVASTATIN. [Concomitant]
     Active Substance: SIMVASTATIN
     Route: 065
  6. APIXABAN [Concomitant]
     Active Substance: APIXABAN
     Route: 065
  7. DOCUSATE SODIUM. [Concomitant]
     Active Substance: DOCUSATE SODIUM
     Route: 065
  8. MOVICOL [Concomitant]
     Active Substance: POLYETHYLENE GLYCOL 3350\POTASSIUM CHLORIDE\SODIUM BICARBONATE\SODIUM CHLORIDE
     Route: 065
  9. INSULIN ASPART [Concomitant]
     Active Substance: INSULIN ASPART
     Route: 065
  10. INSULIN [Concomitant]
     Active Substance: INSULIN NOS
     Route: 065

REACTIONS (3)
  - Gastritis [Recovered/Resolved with Sequelae]
  - Constipation [Unknown]
  - Back pain [Unknown]

NARRATIVE: CASE EVENT DATE: 20190311
